FAERS Safety Report 4553884-0 (Version None)
Quarter: 2005Q1

REPORT INFORMATION
  Report Type: 
  Country: None (occurrence: None)
  Receive Date: 20050113
  Receipt Date: 20050113
  Transmission Date: 20050727
  Serious: Yes (Other)
  Sender: FDA-Public Use
  Company Number: None

PATIENT
  Sex: Female
  Weight: 54.4316 kg

DRUGS (1)
  1. WELLBUTRIN SR [Suspect]
     Indication: SMOKING CESSATION THERAPY
     Dosage: 1 BID P.O.
     Route: 048
     Dates: start: 20050105

REACTIONS (1)
  - APHTHOUS STOMATITIS [None]
